FAERS Safety Report 8429619-8 (Version None)
Quarter: 2012Q2

REPORT INFORMATION
  Report Type: 
  Country: None (occurrence: None)
  Receive Date: 20120612
  Receipt Date: 20120608
  Transmission Date: 20120825
  Serious: Yes (Death, Hospitalization)
  Sender: FDA-Public Use
  Company Number: PHHY2012IN049784

PATIENT
  Age: 71 Year
  Sex: Male

DRUGS (3)
  1. SUZERON [Concomitant]
     Indication: DIZZINESS
  2. SEBIVO [Suspect]
     Dosage: 600 MG, UNK
     Route: 048
     Dates: start: 20120501
  3. SUZERON [Concomitant]
     Indication: HYPOTENSION

REACTIONS (5)
  - OEDEMA PERIPHERAL [None]
  - BLOOD GLUCOSE DECREASED [None]
  - KIDNEY INFECTION [None]
  - LOCALISED OEDEMA [None]
  - HEPATIC INFECTION [None]
